FAERS Safety Report 6438153-6 (Version None)
Quarter: 2009Q4

REPORT INFORMATION
  Report Type: 
  Country: None (occurrence: None)
  Receive Date: 20091112
  Receipt Date: 20091109
  Transmission Date: 20100525
  Serious: Yes (Other)
  Sender: FDA-Public Use
  Company Number: US-RB-022609-09

PATIENT
  Age: 46 Year
  Sex: Male

DRUGS (2)
  1. SUBOXONE [Suspect]
     Route: 060
     Dates: start: 20091030, end: 20091103
  2. SUBOXONE [Suspect]
     Route: 060
     Dates: start: 20091104

REACTIONS (2)
  - HALLUCINATION [None]
  - INSOMNIA [None]
